FAERS Safety Report 9998317 (Version 1)
Quarter: 2014Q1

REPORT INFORMATION
  Report Type: Spontaneous
  Country: JP (occurrence: JP)
  Receive Date: 20140312
  Receipt Date: 20140312
  Transmission Date: 20141002
  Serious: Yes (Hospitalization)
  Sender: FDA-Public Use
  Company Number: JP-009507513-1403JPN004090

PATIENT
  Age: 10 Year
  Sex: 0

DRUGS (2)
  1. SINGULAIR CHEWABLE TABLETS 5MG [Suspect]
     Route: 048
  2. ADOAIR [Concomitant]
     Route: 055

REACTIONS (2)
  - Adverse event [Unknown]
  - Blood urea increased [Unknown]
